FAERS Safety Report 12447288 (Version 1)
Quarter: 2016Q2

REPORT INFORMATION
  Report Type: Spontaneous
  Country: GB (occurrence: GB)
  Receive Date: 20160608
  Receipt Date: 20160608
  Transmission Date: 20160815
  Serious: Yes (Other)
  Sender: FDA-Public Use
  Company Number: GB-TEVA-666313ISR

PATIENT
  Age: 66 Year
  Sex: Female
  Weight: 66 kg

DRUGS (4)
  1. ONDASETRON [Concomitant]
     Active Substance: ONDANSETRON
     Dosage: 1 DOSE OF 8MG IN TOTAL
     Route: 042
     Dates: start: 20160405, end: 20160405
  2. ETOPOSIDE, CONCENTRATE FOR SOLUTION FOR INFUSION [Suspect]
     Active Substance: ETOPOSIDE
     Indication: SMALL CELL LUNG CANCER
     Dosage: 1 DOSE OF 200MG IN TOTAL
     Route: 042
     Dates: start: 20160405, end: 20160405
  3. METOCLOPRAMIDE. [Concomitant]
     Active Substance: METOCLOPRAMIDE
  4. DEXAMETHASONE. [Concomitant]
     Active Substance: DEXAMETHASONE
     Dosage: 1 DOSE OF 8MG IN TOTAL
     Route: 042
     Dates: start: 20160405, end: 20160405

REACTIONS (5)
  - Syncope [Recovered/Resolved with Sequelae]
  - Bronchospasm [Recovered/Resolved with Sequelae]
  - Rash maculo-papular [Recovered/Resolved]
  - Hypersensitivity [Recovered/Resolved with Sequelae]
  - Dyspnoea [Recovered/Resolved with Sequelae]

NARRATIVE: CASE EVENT DATE: 20160405
